FAERS Safety Report 6184773-6 (Version None)
Quarter: 2009Q2

REPORT INFORMATION
  Report Type: 
  Country: None (occurrence: None)
  Receive Date: 20090508
  Receipt Date: 20090429
  Transmission Date: 20091009
  Serious: Yes (Hospitalization)
  Sender: FDA-Public Use
  Company Number: BE-AMGEN-UK345074

PATIENT
  Sex: Female

DRUGS (2)
  1. PANITUMUMAB [Suspect]
     Route: 042
     Dates: start: 20090226
  2. AMG 102 [Suspect]
     Route: 042
     Dates: start: 20090226

REACTIONS (1)
  - CAPILLARY LEAK SYNDROME [None]
